FAERS Safety Report 4462378-2 (Version None)
Quarter: 2004Q3

REPORT INFORMATION
  Report Type: 
  Country: None (occurrence: None)
  Receive Date: 20040923
  Receipt Date: 20040909
  Transmission Date: 20050211
  Serious: Yes (Other)
  Sender: FDA-Public Use
  Company Number: 2004-UK-00646UK

PATIENT
  Age: 34 Year
  Sex: Female

DRUGS (3)
  1. NEVIRAPINE           (NEVIRAPINE) [Suspect]
     Indication: HIV INFECTION
     Route: 064
  2. DIDANOSINE [Suspect]
     Indication: HIV INFECTION
     Dosage: 250 MG
     Route: 064
  3. ZIDOVUDINE [Suspect]
     Route: 064

REACTIONS (3)
  - CONGENITAL ANOMALY [None]
  - DRUG EXPOSURE DURING PREGNANCY [None]
  - STILLBIRTH [None]
